FAERS Safety Report 19917431 (Version 1)
Quarter: 2021Q4

REPORT INFORMATION
  Report Type: Report from Study
  Country: None (occurrence: US)
  Receive Date: 20211005
  Receipt Date: 20211005
  Transmission Date: 20220303
  Serious: Yes (Hospitalization)
  Sender: FDA-Public Use
  Company Number: US-ABBVIE-21K-163-4078104-00

PATIENT
  Sex: Male

DRUGS (2)
  1. IMBRUVICA [Suspect]
     Active Substance: IBRUTINIB
     Indication: Waldenstrom^s macroglobulinaemia
     Route: 048
     Dates: start: 202010
  2. IMBRUVICA [Suspect]
     Active Substance: IBRUTINIB
     Route: 048
     Dates: start: 202010

REACTIONS (7)
  - Pneumonia [Unknown]
  - Arterial occlusive disease [Unknown]
  - Loss of consciousness [Unknown]
  - Blood glucose decreased [Unknown]
  - Hyponatraemic syndrome [Unknown]
  - Fall [Unknown]
  - Renal impairment [Unknown]
